FAERS Safety Report 12834677 (Version 2)
Quarter: 2016Q4

REPORT INFORMATION
  Report Type: Spontaneous
  Country: US (occurrence: US)
  Receive Date: 20161010
  Receipt Date: 20161013
  Transmission Date: 20170207
  Serious: No
  Sender: FDA-Public Use
  Company Number: US-PFIZER INC-2016472200

PATIENT
  Sex: Male

DRUGS (3)
  1. VIAGRA [Suspect]
     Active Substance: SILDENAFIL CITRATE
     Dosage: 100 MG, UNK (CRACK A TABLET IN HALF)
  2. VIAGRA [Suspect]
     Active Substance: SILDENAFIL CITRATE
     Dosage: 25 MG, UNK
  3. VIAGRA [Suspect]
     Active Substance: SILDENAFIL CITRATE
     Dosage: 50 MG, UNK (50 MG HE WOULD CRACK TABLET IN HALF TO SEE IF 25 MG WOULD WORK)

REACTIONS (6)
  - Hangover [Unknown]
  - Nausea [Unknown]
  - Drug ineffective [Unknown]
  - Photosensitivity reaction [Unknown]
  - Sinus congestion [Unknown]
  - Product quality issue [Unknown]
